FAERS Safety Report 12732668 (Version 3)
Quarter: 2016Q4

REPORT INFORMATION
  Report Type: Report from Study
  Country: None (occurrence: US)
  Receive Date: 20160912
  Receipt Date: 20161008
  Transmission Date: 20170207
  Serious: Yes (Hospitalization)
  Sender: FDA-Public Use
  Company Number: US-ABBVIE-16P-163-1724810-00

PATIENT
  Sex: Male

DRUGS (1)
  1. DUOPA [Suspect]
     Active Substance: CARBIDOPA\LEVODOPA
     Indication: PARKINSON^S DISEASE
     Route: 050
     Dates: start: 20151105

REACTIONS (3)
  - Fractured sacrum [Recovering/Resolving]
  - Pelvic fracture [Recovering/Resolving]
  - Fall [Recovering/Resolving]
